FAERS Safety Report 14762704 (Version 1)
Quarter: 2018Q2

REPORT INFORMATION
  Report Type: Spontaneous
  Country: US (occurrence: US)
  Receive Date: 20180416
  Receipt Date: 20180416
  Transmission Date: 20180711
  Serious: No
  Sender: FDA-Public Use
  Company Number: US-PFIZER INC-2018150579

PATIENT
  Age: 49 Year
  Sex: Female

DRUGS (1)
  1. SUTENT [Suspect]
     Active Substance: SUNITINIB MALATE
     Dosage: 3.5 MG, CYCLIC ( 1QD X 28 DAYS THEN 14 DAYS OFF)
     Dates: start: 20171207, end: 20180410

REACTIONS (1)
  - Neoplasm progression [Unknown]
